FAERS Safety Report 5419394-3 (Version None)
Quarter: 2007Q3

REPORT INFORMATION
  Report Type: 
  Country: None (occurrence: None)
  Receive Date: 20070816
  Receipt Date: 20070816
  Transmission Date: 20080115
  Serious: Yes (Other)
  Sender: FDA-Public Use
  Company Number: None

PATIENT
  Age: 35 Year
  Sex: Female
  Weight: 68.0396 kg

DRUGS (1)
  1. GABAPENTIN [Suspect]
     Indication: POSTOPERATIVE ANALGESIA
     Dosage: 1 EVERY 4-6HRS  DAILY  PO
     Route: 048
     Dates: start: 20021101, end: 20040201

REACTIONS (14)
  - ANOREXIA [None]
  - ANXIETY [None]
  - BURNING SENSATION [None]
  - DEPRESSION [None]
  - DRUG DEPENDENCE [None]
  - FOOD CRAVING [None]
  - HALLUCINATION [None]
  - INSOMNIA [None]
  - LOSS OF CONSCIOUSNESS [None]
  - MOOD SWINGS [None]
  - NAUSEA [None]
  - PANIC ATTACK [None]
  - TREMOR [None]
  - WEIGHT DECREASED [None]
